FAERS Safety Report 6206905-3 (Version None)
Quarter: 2009Q2

REPORT INFORMATION
  Report Type: 
  Country: None (occurrence: None)
  Receive Date: 20090528
  Receipt Date: 20090520
  Transmission Date: 20091009
  Serious: Yes (Other)
  Sender: FDA-Public Use
  Company Number: A0774349A

PATIENT
  Age: 53 Year
  Sex: Female
  Weight: 108.2 kg

DRUGS (4)
  1. PAROXETINE HCL [Suspect]
     Indication: DEPRESSION
     Dosage: 40MG PER DAY
     Route: 048
     Dates: start: 20040101, end: 20090101
  2. MAXZIDE [Concomitant]
  3. SEROQUEL [Concomitant]
  4. ATIVAN [Concomitant]

REACTIONS (6)
  - BLOOD PRESSURE INCREASED [None]
  - CHEST DISCOMFORT [None]
  - DIASTOLIC DYSFUNCTION [None]
  - DRUG HYPERSENSITIVITY [None]
  - LEFT VENTRICULAR HYPERTROPHY [None]
  - VOMITING [None]
